FAERS Safety Report 20962249 (Version 5)
Quarter: 2024Q1

REPORT INFORMATION
  Report Type: Spontaneous
  Country: US (occurrence: US)
  Receive Date: 20220615
  Receipt Date: 20240131
  Transmission Date: 20240410
  Serious: No
  Sender: FDA-Public Use
  Company Number: US-PFIZER INC-PV202200001260

PATIENT
  Age: 65 Year
  Sex: Female
  Weight: 121.47 kg

DRUGS (3)
  1. IBRANCE [Suspect]
     Active Substance: PALBOCICLIB
     Indication: Breast cancer female
     Dosage: ONE 125 MG TABLET EVERY DAY FOR 21 DAYS THEN OFF FOR 7 DAYS
     Route: 048
     Dates: start: 20220716
  2. IBRANCE [Suspect]
     Active Substance: PALBOCICLIB
     Dosage: ONE 125 MG TABLET EVERY DAY FOR 21 DAYS
     Route: 048
     Dates: start: 20230817
  3. FASLODEX [Concomitant]
     Active Substance: FULVESTRANT
     Dosage: UNK
     Dates: start: 20220523

REACTIONS (1)
  - Neoplasm progression [Unknown]
